FAERS Safety Report 15698765 (Version 1)
Quarter: 2018Q4

REPORT INFORMATION
  Report Type: Spontaneous
  Country: US (occurrence: US)
  Receive Date: 20181207
  Receipt Date: 20181207
  Transmission Date: 20190205
  Serious: No
  Sender: FDA-Public Use
  Company Number: US-EMD SERONO-9056922

PATIENT
  Sex: Male

DRUGS (1)
  1. REBIF [Suspect]
     Active Substance: INTERFERON BETA-1A
     Indication: MULTIPLE SCLEROSIS
     Route: 058

REACTIONS (7)
  - Nervousness [Unknown]
  - Memory impairment [Unknown]
  - Product dose omission [Unknown]
  - Depressed mood [Unknown]
  - Anxiety [Unknown]
  - Treatment noncompliance [Unknown]
  - Injection site induration [Unknown]
